FAERS Safety Report 8624505-2 (Version None)
Quarter: 2012Q3

REPORT INFORMATION
  Report Type: 
  Country: None (occurrence: None)
  Receive Date: 20120827
  Receipt Date: 20120814
  Transmission Date: 20120928
  Serious: Yes (Other)
  Sender: FDA-Public Use
  Company Number: US-JNJFOC-20120807807

PATIENT
  Age: 45 Year
  Sex: Male

DRUGS (1)
  1. VISINE EYE DROPS [Suspect]
     Indication: ACCIDENTAL EXPOSURE
     Route: 048
     Dates: start: 20090601

REACTIONS (7)
  - ACCIDENTAL EXPOSURE [None]
  - VOMITING [None]
  - MALAISE [None]
  - HYPERTENSION [None]
  - TOXICITY TO VARIOUS AGENTS [None]
  - RESPIRATORY DISORDER [None]
  - NAUSEA [None]
